FAERS Safety Report 6495045-4 (Version None)
Quarter: 2009Q4

REPORT INFORMATION
  Report Type: 
  Country: None (occurrence: None)
  Receive Date: 20091214
  Receipt Date: 20090421
  Transmission Date: 20100525
  Serious: No
  Sender: FDA-Public Use
  Company Number: US-BRISTOL-MYERS SQUIBB COMPANY-14598700

PATIENT
  Age: 88 Year
  Sex: Male

DRUGS (2)
  1. ABILIFY [Suspect]
  2. PAXIL [Suspect]

REACTIONS (2)
  - DROOLING [None]
  - PARKINSONISM [None]
